FAERS Safety Report 8758493 (Version 2)
Quarter: 2012Q4

REPORT INFORMATION
  Report Type: 
  Country: CA (occurrence: CA)
  Receive Date: 20120829
  Receipt Date: 20121204
  Transmission Date: 20130627
  Serious: Yes (Other)
  Sender: FDA-Public Use
  Company Number: CA-BAYER-2012-086041

PATIENT
  Age: 29 Year
  Sex: Female

DRUGS (3)
  1. MIRENA [Suspect]
     Indication: HEAVY PERIODS
     Dosage: 20 mcg/24hr, CONT
     Route: 015
     Dates: start: 20080213
  2. MIRENA [Suspect]
     Indication: OVARIAN CYST
  3. REACTINE [CETIRIZINE] [Concomitant]

REACTIONS (7)
  - Acne [Not Recovered/Not Resolved]
  - Alopecia [Not Recovered/Not Resolved]
  - Anxiety [Not Recovered/Not Resolved]
  - Cyst [Not Recovered/Not Resolved]
  - Depression [Not Recovered/Not Resolved]
  - Dyspareunia [Not Recovered/Not Resolved]
  - Hair growth abnormal [Not Recovered/Not Resolved]
